FAERS Safety Report 4844475-2 (Version None)
Quarter: 2005Q4

REPORT INFORMATION
  Report Type: 
  Country: None (occurrence: None)
  Receive Date: 20051202
  Receipt Date: 20051123
  Transmission Date: 20060501
  Serious: Yes (Death, Hospitalization, Other)
  Sender: FDA-Public Use
  Company Number: US-MERCK-0511USA04224

PATIENT
  Age: 82 Year
  Sex: Female
  Weight: 73 kg

DRUGS (19)
  1. VIOXX [Suspect]
     Indication: ARTHRITIS
     Route: 048
     Dates: start: 20010101, end: 20021016
  2. VIOXX [Suspect]
     Route: 048
     Dates: start: 20030205, end: 20030224
  3. RANITIDINE [Concomitant]
     Route: 065
  4. ZOLOFT [Concomitant]
     Route: 065
  5. DIOVAN [Concomitant]
     Route: 065
  6. PREDNISONE [Concomitant]
     Route: 065
  7. NIFEDIPINE [Concomitant]
     Route: 065
  8. CEFTIN [Concomitant]
     Route: 065
  9. ZITHROMAX [Concomitant]
     Route: 065
  10. FLOVENT [Concomitant]
     Route: 065
  11. FUROSEMIDE [Concomitant]
     Route: 065
  12. HYDROXYZINE HYDROCHLORIDE [Concomitant]
     Route: 065
  13. KLOR-CON [Concomitant]
     Route: 065
  14. POTASSIUM (UNSPECIFIED) [Concomitant]
     Route: 065
  15. SUCRALFATE [Concomitant]
     Route: 065
  16. CLONAZEPAM [Concomitant]
     Route: 065
  17. [THERAPY UNSPECIFIED] [Concomitant]
     Route: 065
  18. [THERAPY UNSPECIFIED] [Concomitant]
     Route: 065
  19. [THERAPY UNSPECIFIED] [Concomitant]
     Route: 065

REACTIONS (10)
  - ANGINA PECTORIS [None]
  - ARTHROPATHY [None]
  - CEREBROVASCULAR ACCIDENT [None]
  - CHEST PAIN [None]
  - DEATH [None]
  - DIZZINESS [None]
  - HAEMORRHAGE [None]
  - MYOCARDIAL INFARCTION [None]
  - RENAL FAILURE [None]
  - THROMBOSIS [None]
